FAERS Safety Report 10192416 (Version 1)
Quarter: 2014Q2

REPORT INFORMATION
  Report Type: Spontaneous
  Country: CH (occurrence: CH)
  Receive Date: 20140523
  Receipt Date: 20140523
  Transmission Date: 20141212
  Serious: Yes (Death)
  Sender: FDA-Public Use
  Company Number: CH-ACTAVIS-2014-11112

PATIENT
  Age: 82 Year
  Sex: Male

DRUGS (4)
  1. HYDROCORTISONE (UNKNOWN) [Suspect]
     Indication: TUBERCULOSIS
     Dosage: 60 MG, DAILY
     Route: 065
  2. PERINDOPRIL [Concomitant]
     Indication: HYPERTENSION
     Dosage: UNK
     Route: 065
  3. INDAPAMID [Concomitant]
     Indication: HYPERTENSION
     Dosage: UNK
     Route: 065
  4. REPAGLINIDE [Concomitant]
     Indication: DIABETES MELLITUS
     Dosage: UNK
     Route: 065

REACTIONS (2)
  - Adrenal insufficiency [Fatal]
  - Steroid withdrawal syndrome [Fatal]
